FAERS Safety Report 5586288-2 (Version None)
Quarter: 2008Q1

REPORT INFORMATION
  Report Type: 
  Country: None (occurrence: None)
  Receive Date: 20080107
  Receipt Date: 20080107
  Transmission Date: 20080703
  Serious: Yes (Other)
  Sender: FDA-Public Use
  Company Number: None

PATIENT
  Age: 21 Year
  Sex: Female
  Weight: 46.2669 kg

DRUGS (1)
  1. LEVAQUIN [Suspect]
     Indication: URINARY TRACT INFECTION
     Dosage: 250  DAILY  PO
     Route: 048

REACTIONS (4)
  - ARTHRALGIA [None]
  - BURNING SENSATION [None]
  - MYALGIA [None]
  - PAIN IN EXTREMITY [None]
